FAERS Safety Report 16416630 (Version 3)
Quarter: 2023Q4

REPORT INFORMATION
  Report Type: Report from Study
  Country: JP (occurrence: JP)
  Receive Date: 20190611
  Receipt Date: 20231018
  Transmission Date: 20240110
  Serious: No
  Sender: FDA-Public Use
  Company Number: JP-PFIZER INC-2018535768

PATIENT
  Age: 65 Year
  Sex: Female
  Weight: 60 kg

DRUGS (5)
  1. LORBRENA [Suspect]
     Active Substance: LORLATINIB
     Indication: Non-small cell lung cancer
     Dosage: 1 TABLET, MORNING
     Route: 048
     Dates: start: 20181205
  2. RISPERIDONE [Suspect]
     Active Substance: RISPERIDONE
     Indication: Dementia
     Dosage: UNK
     Route: 048
  3. NIFEDIPINE [Concomitant]
     Active Substance: NIFEDIPINE
     Indication: Hypertension
     Dosage: UNK
     Route: 048
  4. URSODIOL [Concomitant]
     Active Substance: URSODIOL
     Indication: Hepatic function abnormal
     Dosage: UNK
     Route: 048
  5. PITAVASTATIN [Concomitant]
     Active Substance: PITAVASTATIN
     Indication: Dyslipidaemia
     Dosage: UNK
     Route: 048

REACTIONS (4)
  - Delirium [Recovering/Resolving]
  - Aggression [Recovering/Resolving]
  - Hypercholesterolaemia [Unknown]
  - Hypertriglyceridaemia [Unknown]

NARRATIVE: CASE EVENT DATE: 20181205
